FAERS Safety Report 12093682 (Version 1)
Quarter: 2016Q1

REPORT INFORMATION
  Report Type: Spontaneous
  Country: US (occurrence: None)
  Receive Date: 20160218
  Receipt Date: 20160218
  Transmission Date: 20160526
  Serious: Yes (Hospitalization)
  Sender: FDA-Public Use
  Company Number: None

PATIENT
  Age: 67 Year
  Sex: Male
  Weight: 101.3 kg

DRUGS (2)
  1. RIVAROXABAN [Suspect]
     Active Substance: RIVAROXABAN
     Indication: ATRIAL FIBRILLATION
     Dosage: 15 MG PM PO
     Route: 048
     Dates: start: 20150224, end: 20150905
  2. ASPIRIN. [Suspect]
     Active Substance: ASPIRIN
     Indication: CORONARY ARTERY DISEASE
     Route: 048
     Dates: start: 20110911

REACTIONS (5)
  - Gastrointestinal angiodysplasia haemorrhagic [None]
  - Anaemia [None]
  - Gastric haemorrhage [None]
  - Acute kidney injury [None]
  - Dizziness [None]

NARRATIVE: CASE EVENT DATE: 20150902
